FAERS Safety Report 8222848-8 (Version None)
Quarter: 2012Q1

REPORT INFORMATION
  Report Type: 
  Country: None (occurrence: None)
  Receive Date: 20120320
  Receipt Date: 20120313
  Transmission Date: 20120608
  Serious: Yes (Congenital Anomaly, Other)
  Sender: FDA-Public Use
  Company Number: PHHY2012GB021816

PATIENT
  Age: 12 Week
  Sex: Male

DRUGS (7)
  1. QUETIAPINE [Suspect]
     Route: 064
  2. LITHIUM CARBONATE [Suspect]
     Route: 064
  3. FERROUS SULPHATE SANDOZ [Suspect]
     Route: 064
  4. CODEINE PHOSPHATE [Suspect]
     Route: 064
  5. REBOXETINE [Suspect]
     Route: 064
  6. AMOXICILLIN [Suspect]
     Route: 064
  7. EFFEXOR [Suspect]
     Route: 064

REACTIONS (2)
  - FOETAL EXPOSURE DURING PREGNANCY [None]
  - PIERRE ROBIN SYNDROME [None]
